FAERS Safety Report 10279683 (Version 1)
Quarter: 2014Q3

REPORT INFORMATION
  Report Type: Spontaneous
  Country: FR (occurrence: FR)
  Receive Date: 20140707
  Receipt Date: 20140707
  Transmission Date: 20150326
  Serious: Yes (Hospitalization)
  Sender: FDA-Public Use
  Company Number: FR-009507513-1406FRA013173

PATIENT
  Age: 88 Year
  Sex: Female

DRUGS (6)
  1. SINEMET 100 MG / 10 MG COMPRIME SECABLE [Suspect]
     Active Substance: CARBIDOPA\LEVODOPA
     Indication: PARKINSONISM
     Dosage: UNK
     Route: 048
     Dates: start: 20130913, end: 20131002
  2. CARDENSIEL [Concomitant]
     Active Substance: BISOPROLOL FUMARATE
  3. XANAX [Concomitant]
     Active Substance: ALPRAZOLAM
  4. RAMIPRIL. [Concomitant]
     Active Substance: RAMIPRIL
  5. KARDEGIC [Concomitant]
     Active Substance: ASPIRIN LYSINE
  6. LEVEMIR [Concomitant]
     Active Substance: INSULIN DETEMIR

REACTIONS (1)
  - Autoimmune haemolytic anaemia [Recovered/Resolved]

NARRATIVE: CASE EVENT DATE: 20130919
